FAERS Safety Report 24142205 (Version 2)
Quarter: 2024Q3

REPORT INFORMATION
  Report Type: Spontaneous
  Country: CO (occurrence: CO)
  Receive Date: 20240726
  Receipt Date: 20240903
  Transmission Date: 20241017
  Serious: No
  Sender: PFIZER
  Company Number: CO-PFIZER INC-PV202400096085

PATIENT
  Age: 13 Year
  Sex: Male

DRUGS (1)
  1. GENOTROPIN [Suspect]
     Active Substance: SOMATROPIN

REACTIONS (1)
  - Wrong technique in device usage process [Unknown]

NARRATIVE: CASE EVENT DATE: 20231201
